FAERS Safety Report 8093192-7 (Version None)
Quarter: 2012Q1

REPORT INFORMATION
  Report Type: 
  Country: None (occurrence: None)
  Receive Date: 20120131
  Receipt Date: 20120120
  Transmission Date: 20120608
  Serious: Yes (Hospitalization, Other)
  Sender: FDA-Public Use
  Company Number: US-ELI_LILLY_AND_COMPANY-US201201006804

PATIENT
  Sex: Male

DRUGS (13)
  1. LOVAZA [Concomitant]
     Dosage: UNK
  2. HUMULIN R [Suspect]
     Indication: TYPE 2 DIABETES MELLITUS
     Dosage: 30 U, UNKNOWN
     Route: 065
  3. DIGOXIN [Concomitant]
     Dosage: UNK
  4. POTASSIUM [Concomitant]
     Dosage: UNK
  5. PROVIGIL [Concomitant]
     Indication: NARCOLEPSY
     Dosage: UNK
  6. OTHER ANTIHYPERTENSIVES [Concomitant]
     Dosage: UNK
  7. GABAPENTIN [Concomitant]
     Indication: NEUROPATHY PERIPHERAL
     Dosage: UNK
  8. METFORMIN HCL [Concomitant]
     Dosage: UNK
  9. FUROSEMIDE [Concomitant]
     Dosage: UNK
  10. HUMALOG [Suspect]
     Indication: TYPE 2 DIABETES MELLITUS
     Dosage: UNK, UNKNOWN
     Route: 065
  11. ZAROXOLYN [Concomitant]
     Dosage: UNK
  12. WARFARIN SODIUM [Concomitant]
     Dosage: UNK
  13. LANTUS [Concomitant]
     Dosage: 36 U, EACH MORNING

REACTIONS (14)
  - HIGH FREQUENCY ABLATION [None]
  - DYSPNOEA [None]
  - WEIGHT DECREASED [None]
  - THROMBOSIS [None]
  - PULMONARY OEDEMA [None]
  - CHEST DISCOMFORT [None]
  - NARCOLEPSY [None]
  - ANGINA PECTORIS [None]
  - CARDIAC MURMUR [None]
  - MALAISE [None]
  - ARRHYTHMIA [None]
  - DIABETES MELLITUS INADEQUATE CONTROL [None]
  - AORTIC VALVE REPLACEMENT [None]
  - HEART RATE INCREASED [None]
